FAERS Safety Report 16748222 (Version 1)
Quarter: 2019Q3

REPORT INFORMATION
  Report Type: Spontaneous
  Country: US (occurrence: US)
  Receive Date: 20190827
  Receipt Date: 20190827
  Transmission Date: 20191005
  Serious: Yes (Hospitalization)
  Sender: FDA-Public Use
  Company Number: US-ELI_LILLY_AND_COMPANY-US201908008470

PATIENT
  Age: 66 Year
  Sex: Female

DRUGS (3)
  1. GLIPIZIDE. [Suspect]
     Active Substance: GLIPIZIDE
     Indication: PRODUCT USED FOR UNKNOWN INDICATION
     Dosage: UNK, UNKNOWN
     Route: 065
  2. TRULICITY [Suspect]
     Active Substance: DULAGLUTIDE
     Indication: VULVOVAGINAL DISCOMFORT
     Dosage: 0.75 MG, UNKNOWN
     Route: 065
  3. TRULICITY [Suspect]
     Active Substance: DULAGLUTIDE
     Indication: TYPE 2 DIABETES MELLITUS
     Dosage: 1.5 MG, UNKNOWN
     Route: 065

REACTIONS (6)
  - Heart rate increased [Recovered/Resolved]
  - Oral discomfort [Unknown]
  - Vulvovaginal pruritus [Recovering/Resolving]
  - Vulvovaginal discomfort [Recovering/Resolving]
  - Blood glucose increased [Recovered/Resolved]
  - Vulvovaginal swelling [Recovering/Resolving]
